FAERS Safety Report 8615052-2 (Version None)
Quarter: 2012Q3

REPORT INFORMATION
  Report Type: 
  Country: None (occurrence: None)
  Receive Date: 20120823
  Receipt Date: 20120809
  Transmission Date: 20120928
  Serious: Yes (Death, Life-Threatening, Hospitalization, Other)
  Sender: FDA-Public Use
  Company Number: DE-RANBAXY-2011RR-45264

PATIENT
  Age: 70 Year
  Sex: Male
  Weight: 77 kg

DRUGS (8)
  1. FRAXIPARIN, 0.3 ML, AMP, GSK [Concomitant]
     Indication: PRODUCT USED FOR UNKNOWN INDICATION
     Dosage: 2850 IU, QD
     Route: 058
     Dates: start: 20110104, end: 20110118
  2. ZINACEF [Suspect]
     Indication: ENDOCARDITIS
     Dosage: 1.5-3 G DAILY
     Route: 042
     Dates: start: 20110113, end: 20110119
  3. FENISTIL, 1 MG, NOVARTIS [Concomitant]
     Indication: PRODUCT USED FOR UNKNOWN INDICATION
     Dosage: UNK
     Route: 048
     Dates: start: 20110108, end: 20110118
  4. RAMIPRIL [Suspect]
     Indication: PRODUCT USED FOR UNKNOWN INDICATION
     Dosage: 2.5 MG, QD
     Route: 049
     Dates: start: 20100201, end: 20110119
  5. MIDAZOLAM, AMP [Concomitant]
     Indication: PRODUCT USED FOR UNKNOWN INDICATION
     Dosage: UNK
     Route: 042
     Dates: start: 20110102, end: 20110113
  6. SOBELIN, 600 MG, AMP, PFIZER [Concomitant]
     Indication: PRODUCT USED FOR UNKNOWN INDICATION
     Dosage: UNK
     Route: 042
     Dates: start: 20110109, end: 20110113
  7. GENTAMICIN [Suspect]
     Indication: ENDOCARDITIS
     Dosage: UNK
     Route: 042
     Dates: start: 20110103, end: 20110119
  8. PROTAPHANE, AMP, NOVO NORDISK [Concomitant]
     Indication: PRODUCT USED FOR UNKNOWN INDICATION
     Dosage: UNK
     Route: 058
     Dates: start: 19950101

REACTIONS (2)
  - DRUG INTERACTION [None]
  - RENAL FAILURE ACUTE [None]
